FAERS Safety Report 18407199 (Version 2)
Quarter: 2021Q2

REPORT INFORMATION
  Report Type: Report from Study
  Country: US (occurrence: US)
  Receive Date: 20201020
  Receipt Date: 20210614
  Transmission Date: 20210717
  Serious: Yes (Death, Hospitalization, Other)
  Sender: FDA-Public Use
  Company Number: US-ASTRAZENECA-2020SF34147

PATIENT
  Age: 24748 Day
  Sex: Male
  Weight: 83.9 kg

DRUGS (9)
  1. ELIQUIS [Concomitant]
     Active Substance: APIXABAN
     Dates: start: 20200523, end: 20200812
  2. FLOMAR [Concomitant]
     Dates: start: 20200523, end: 20200812
  3. LASIX [Concomitant]
     Active Substance: FUROSEMIDE
     Dates: start: 20200523, end: 20200812
  4. BRILINTA [Suspect]
     Active Substance: TICAGRELOR
     Indication: MYOCARDIAL INFARCTION
     Route: 048
     Dates: start: 20200506
  5. BRILINTA [Suspect]
     Active Substance: TICAGRELOR
     Indication: MYOCARDIAL INFARCTION
     Route: 048
     Dates: start: 20200523, end: 20200812
  6. DIGOXIN. [Concomitant]
     Active Substance: DIGOXIN
     Dates: start: 20200523, end: 20200812
  7. LIPITOR [Concomitant]
     Active Substance: ATORVASTATIN CALCIUM
     Dates: start: 20200523, end: 20200812
  8. TOPROL XL [Concomitant]
     Active Substance: METOPROLOL SUCCINATE
     Dates: start: 20200523, end: 20200812
  9. PROTONIX [Concomitant]
     Active Substance: PANTOPRAZOLE SODIUM
     Dates: start: 20200523, end: 20200812

REACTIONS (4)
  - Cardiogenic shock [Fatal]
  - Ischaemic cardiomyopathy [Fatal]
  - Acute myocardial infarction [Fatal]
  - Pulmonary embolism [Unknown]

NARRATIVE: CASE EVENT DATE: 20200528
